FAERS Safety Report 13874708 (Version 1)
Quarter: 2017Q3

REPORT INFORMATION
  Report Type: Spontaneous
  Country: US (occurrence: US)
  Receive Date: 20170816
  Receipt Date: 20170816
  Transmission Date: 20171127
  Serious: Yes (Other)
  Sender: FDA-Public Use
  Company Number: US-ROCHE-1211313

PATIENT
  Age: 64 Year
  Sex: Female

DRUGS (3)
  1. LUCENTIS [Suspect]
     Active Substance: RANIBIZUMAB
     Indication: AGE-RELATED MACULAR DEGENERATION
     Route: 050
     Dates: start: 20081201
  2. BETADINE [Suspect]
     Active Substance: POVIDONE-IODINE
     Indication: EYE BURNS
     Route: 065
     Dates: start: 20081201, end: 20090401
  3. BETADINE [Suspect]
     Active Substance: POVIDONE-IODINE
     Route: 065
     Dates: start: 20130326

REACTIONS (4)
  - Eye irritation [Unknown]
  - Photophobia [Not Recovered/Not Resolved]
  - Corneal abrasion [Unknown]
  - Eye pain [Not Recovered/Not Resolved]

NARRATIVE: CASE EVENT DATE: 20081201
